FAERS Safety Report 4287485-9 (Version None)
Quarter: 2004Q1

REPORT INFORMATION
  Report Type: 
  Country: None (occurrence: None)
  Receive Date: 20040205
  Receipt Date: 20030812
  Transmission Date: 20041129
  Serious: Yes (Life-Threatening)
  Sender: FDA-Public Use
  Company Number: F04200300113

PATIENT
  Age: 70 Year
  Sex: Female

DRUGS (5)
  1. ARIXTRA [Suspect]
     Indication: EMBOLISM
     Dosage: 2.5 MG OD; SUBCUTANEOUS
     Route: 058
     Dates: start: 20030409, end: 20030414
  2. ARIXTRA [Suspect]
     Indication: HIP ARTHROPLASTY
     Dosage: 2.5 MG OD; SUBCUTANEOUS
     Route: 058
     Dates: start: 20030409, end: 20030414
  3. ARIXTRA [Suspect]
     Indication: PROPHYLAXIS
     Dosage: 2.5 MG OD; SUBCUTANEOUS
     Route: 058
     Dates: start: 20030409, end: 20030414
  4. NITREGAMMA (NITRENDIPINE) [Concomitant]
  5. LISIGAMMA (LISINOPRIL) [Concomitant]

REACTIONS (3)
  - ANGINA PECTORIS [None]
  - DYSPNOEA [None]
  - MYOCARDIAL ISCHAEMIA [None]
